FAERS Safety Report 11267592 (Version 2)
Quarter: 2018Q2

REPORT INFORMATION
  Report Type: Spontaneous
  Country: US (occurrence: US)
  Receive Date: 20150713
  Receipt Date: 20180420
  Transmission Date: 20180711
  Serious: No
  Sender: FDA-Public Use
  Company Number: US-GLAXOSMITHKLINE-US2015GSK081501

PATIENT
  Age: 46 Year
  Sex: Female

DRUGS (1)
  1. BENLYSTA [Suspect]
     Active Substance: BELIMUMAB
     Indication: SYSTEMIC LUPUS ERYTHEMATOSUS
     Dosage: UNK
     Route: 042
     Dates: start: 20140101

REACTIONS (3)
  - Back pain [Recovering/Resolving]
  - Malaise [Unknown]
  - Mass [Unknown]

NARRATIVE: CASE EVENT DATE: 201505
